FAERS Safety Report 4676650-4 (Version None)
Quarter: 2005Q2

REPORT INFORMATION
  Report Type: 
  Country: None (occurrence: None)
  Receive Date: 20050527
  Receipt Date: 20050520
  Transmission Date: 20051028
  Serious: Yes (Other)
  Sender: FDA-Public Use
  Company Number: PHEH2005US05801

PATIENT
  Sex: Female

DRUGS (13)
  1. ZOMETA [Suspect]
     Indication: BREAST CANCER METASTATIC
     Dosage: 4MG QMO
     Route: 042
     Dates: start: 20020301, end: 20050101
  2. STEROIDS NOS [Concomitant]
  3. PRAVACHOL [Concomitant]
  4. COUMADIN [Concomitant]
  5. CELEXA [Concomitant]
  6. DIGOXIN [Concomitant]
  7. LEVOTHYROXINE SODIUM [Concomitant]
  8. PREVACID [Concomitant]
  9. AMBIEN [Concomitant]
  10. ZANAFLEX [Concomitant]
  11. TRILISATE [Concomitant]
  12. ZYRTEC [Concomitant]
  13. COMBIVENT                               /GFR/ [Concomitant]

REACTIONS (1)
  - ASEPTIC NECROSIS BONE [None]
